FAERS Safety Report 19650071 (Version 7)
Quarter: 2021Q4

REPORT INFORMATION
  Report Type: Spontaneous
  Country: JP (occurrence: JP)
  Receive Date: 20210803
  Receipt Date: 20211118
  Transmission Date: 20220303
  Serious: Yes (Other)
  Sender: FDA-Public Use
  Company Number: NVSJ2021JP011375

PATIENT
  Age: 70 Year
  Sex: Female

DRUGS (3)
  1. BEOVU [Suspect]
     Active Substance: BROLUCIZUMAB-DBLL
     Indication: Age-related macular degeneration
     Dosage: 6 MG
     Route: 031
     Dates: start: 20210706, end: 20210706
  2. BEOVU [Suspect]
     Active Substance: BROLUCIZUMAB-DBLL
     Indication: Polypoidal choroidal vasculopathy
  3. RINDERON [Concomitant]
     Indication: Prophylaxis
     Dosage: 5ML, QID
     Route: 047
     Dates: start: 20210706, end: 20210819

REACTIONS (11)
  - Macular oedema [Recovered/Resolved]
  - Retinal vasculitis [Recovered/Resolved with Sequelae]
  - Retinal perivascular sheathing [Recovered/Resolved]
  - Blindness transient [Recovering/Resolving]
  - Uveitis [Recovered/Resolved]
  - Conjunctival hyperaemia [Recovered/Resolved]
  - Ciliary hyperaemia [Unknown]
  - Anterior chamber cell [Unknown]
  - Vision blurred [Unknown]
  - Vitreous opacities [Unknown]
  - Vitreous floaters [Unknown]

NARRATIVE: CASE EVENT DATE: 20210719
